FAERS Safety Report 5900293-5 (Version None)
Quarter: 2008Q3

REPORT INFORMATION
  Report Type: 
  Country: None (occurrence: None)
  Receive Date: 20080926
  Receipt Date: 20080923
  Transmission Date: 20090109
  Serious: Yes (Other)
  Sender: FDA-Public Use
  Company Number: PHHY2008ES12285

PATIENT
  Age: 40 Year
  Sex: Male

DRUGS (1)
  1. TRILEPTAL [Suspect]
     Indication: BIPOLAR DISORDER
     Dosage: DOSE SUPERIOR TO 1200 MG/DAY

REACTIONS (1)
  - BONE MARROW FAILURE [None]
